FAERS Safety Report 8170740-X (Version None)
Quarter: 2012Q1

REPORT INFORMATION
  Report Type: 
  Country: None (occurrence: None)
  Receive Date: 20120104
  Receipt Date: 20111116
  Transmission Date: 20120608
  Serious: No
  Sender: FDA-Public Use
  Company Number: 2011HGS-002813

PATIENT
  Age: 62 Year
  Sex: Female
  Weight: 58.0604 kg

DRUGS (7)
  1. METHOTREXATE [Concomitant]
  2. PLAQUENIL [Concomitant]
  3. BENLYSTA [Suspect]
     Dosage: 1 IN 28 D, INTRAVENOUS DRIP
     Route: 041
     Dates: start: 20111104
  4. CYMBALTA [Concomitant]
  5. MELOXICAM [Concomitant]
  6. FOLIC ACID [Concomitant]
  7. ALENDRONATE SODIUM [Concomitant]

REACTIONS (8)
  - INFUSION SITE PAIN [None]
  - GASTROOESOPHAGEAL REFLUX DISEASE [None]
  - NAUSEA [None]
  - INFUSION SITE REACTION [None]
  - MYALGIA [None]
  - INFUSION SITE DISCOLOURATION [None]
  - INFUSION SITE SWELLING [None]
  - ARTHRALGIA [None]
